FAERS Safety Report 11872543 (Version 1)
Quarter: 2015Q4

REPORT INFORMATION
  Report Type: Report from Study
  Country: JP (occurrence: JP)
  Receive Date: 20151228
  Receipt Date: 20151228
  Transmission Date: 20160305
  Serious: Yes (Death)
  Sender: FDA-Public Use
  Company Number: JP-OTSUKA-2015_017322

PATIENT
  Age: 94 Year
  Sex: Male
  Weight: 55.4 kg

DRUGS (5)
  1. LASIX R [Concomitant]
     Active Substance: FUROSEMIDE\RESERPINE
     Indication: CARDIAC FAILURE
     Dosage: 60 MG, DAILY DOSE
     Route: 042
     Dates: start: 20150713, end: 20150714
  2. TOLVAPTAN [Suspect]
     Active Substance: TOLVAPTAN
     Indication: FLUID RETENTION
     Dosage: 15 MG, QD (IN THE MORNING)
     Route: 048
     Dates: start: 20150713, end: 20150716
  3. DOBUTAMINE HYDROCHLORIDE. [Concomitant]
     Active Substance: DOBUTAMINE HYDROCHLORIDE
     Indication: PRODUCT USED FOR UNKNOWN INDICATION
     Dosage: 1.8 DF, DAILY DOSE
     Route: 042
     Dates: start: 20150713, end: 20150716
  4. NOREPINEPHRINE [Concomitant]
     Active Substance: NOREPINEPHRINE\NOREPINEPHRINE BITARTRATE
     Indication: PRODUCT USED FOR UNKNOWN INDICATION
     Dosage: 0.2 MG, Q1HR
     Route: 042
     Dates: start: 20150713, end: 20150716
  5. ZOSYN [Concomitant]
     Active Substance: PIPERACILLIN SODIUM\TAZOBACTAM SODIUM
     Indication: PRODUCT USED FOR UNKNOWN INDICATION
     Dosage: 6.75 G, DAILY DOSE
     Route: 042
     Dates: start: 20150713, end: 20150716

REACTIONS (2)
  - Bacteraemia [Fatal]
  - Hypernatraemia [Fatal]

NARRATIVE: CASE EVENT DATE: 20150715
